FAERS Safety Report 9170108 (Version 1)
Quarter: 2013Q1

REPORT INFORMATION
  Report Type: Spontaneous
  Country: US (occurrence: None)
  Receive Date: 20130314
  Receipt Date: 20130314
  Transmission Date: 20140127
  Serious: Yes (Hospitalization)
  Sender: FDA-Public Use
  Company Number: None

PATIENT
  Sex: Female
  Weight: 62 kg

DRUGS (7)
  1. REMICADE -INFLIXIMAB- 10 MG/ML JANSSEN [Suspect]
     Indication: JUVENILE IDIOPATHIC ARTHRITIS
     Dates: start: 20130228, end: 20130228
  2. SODIUM CHLORIDE [Concomitant]
  3. AMITRIPTYLINE [Concomitant]
  4. AMITRIPTYLINE [Concomitant]
  5. BUPROPION [Concomitant]
  6. DEXTROSE [Concomitant]
  7. NACL WITH KCL [Concomitant]

REACTIONS (9)
  - Chest discomfort [None]
  - Rash macular [None]
  - Rash erythematous [None]
  - Asthenia [None]
  - Infusion related reaction [None]
  - Convulsion [None]
  - Syncope [None]
  - Tachycardia [None]
  - Headache [None]
